FAERS Safety Report 23732774 (Version 2)
Quarter: 2024Q2

REPORT INFORMATION
  Report Type: Spontaneous
  Country: CN (occurrence: CN)
  Receive Date: 20240411
  Receipt Date: 20240412
  Transmission Date: 20240716
  Serious: Yes (Hospitalization)
  Sender: FDA-Public Use
  Company Number: CN-JNJFOC-20240420338

PATIENT

DRUGS (1)
  1. ERLEADA [Suspect]
     Active Substance: APALUTAMIDE
     Indication: Product used for unknown indication
     Dosage: THE DRUG WAS TAKEN ON 26-FEBRUARY AND USED ONE MONTH CURRENTLY
     Route: 048
     Dates: start: 20230226

REACTIONS (2)
  - Anaphylactic shock [Unknown]
  - Rash [Unknown]
